FAERS Safety Report 12936375 (Version 2)
Quarter: 2016Q4

REPORT INFORMATION
  Report Type: Other
  Country: None (occurrence: US)
  Receive Date: 20161114
  Receipt Date: 20161215
  Transmission Date: 20170207
  Serious: Yes (Death, Disabling, Other)
  Sender: FDA-Public Use
  Company Number: US-ACORDA-ACO_130154_2016

PATIENT
  Sex: Male
  Weight: 58.5 kg

DRUGS (4)
  1. AMPYRA [Suspect]
     Active Substance: DALFAMPRIDINE
     Indication: MULTIPLE SCLEROSIS
     Dosage: 10 MG, BID
     Route: 048
     Dates: start: 201011
  2. COPAXONE [Suspect]
     Active Substance: GLATIRAMER ACETATE
     Indication: MULTIPLE SCLEROSIS
     Dosage: UNK
     Route: 065
     Dates: start: 2007
  3. AMPYRA [Suspect]
     Active Substance: DALFAMPRIDINE
     Indication: MUSCLE SPASTICITY
     Dosage: 10 MG, BID
     Route: 048
     Dates: start: 20150723
  4. IRON [Concomitant]
     Active Substance: IRON
     Indication: PRODUCT USED FOR UNKNOWN INDICATION
     Dosage: 365, QD
     Route: 065

REACTIONS (24)
  - Pancytopenia [Unknown]
  - Muscle spasms [Unknown]
  - Exostosis [Unknown]
  - Multiple sclerosis [Unknown]
  - Headache [Unknown]
  - Anaemia [Fatal]
  - Deafness [Unknown]
  - Hyperreflexia [Unknown]
  - Fatigue [Unknown]
  - Weight decreased [Unknown]
  - Haematological malignancy [Fatal]
  - Back pain [Unknown]
  - Lymphadenopathy [Unknown]
  - Hypertonia [None]
  - Musculoskeletal stiffness [Unknown]
  - Walking aid user [Not Recovered/Not Resolved]
  - Upper motor neurone lesion [Unknown]
  - Secondary progressive multiple sclerosis [Unknown]
  - Pollakiuria [Unknown]
  - Muscular weakness [Unknown]
  - Off label use [Unknown]
  - Bone marrow disorder [Unknown]
  - Impaired work ability [Not Recovered/Not Resolved]
  - Gait spastic [Unknown]

NARRATIVE: CASE EVENT DATE: 2012
